FAERS Safety Report 7933629-4 (Version None)
Quarter: 2011Q4

REPORT INFORMATION
  Report Type: 
  Country: None (occurrence: None)
  Receive Date: 20111122
  Receipt Date: 20111026
  Transmission Date: 20120403
  Serious: Yes (Hospitalization)
  Sender: FDA-Public Use
  Company Number: PHHO2011US018591

PATIENT
  Sex: Male

DRUGS (3)
  1. PREDNISOLONE [Suspect]
  2. CYCLOSPORINE [Suspect]
     Indication: CHRONIC GRAFT VERSUS HOST DISEASE
     Dosage: UNK
     Dates: start: 20100915
  3. RITUXIMAB [Suspect]
     Indication: CHRONIC GRAFT VERSUS HOST DISEASE
     Dosage: 100 MG (10 MG/ML)
     Dates: start: 20101119, end: 20101210

REACTIONS (3)
  - GENERAL PHYSICAL HEALTH DETERIORATION [None]
  - RENAL FAILURE [None]
  - OVERDOSE [None]
